FAERS Safety Report 17223898 (Version 2)
Quarter: 2020Q1

REPORT INFORMATION
  Report Type: Spontaneous
  Country: JP (occurrence: JP)
  Receive Date: 20200102
  Receipt Date: 20200106
  Transmission Date: 20200409
  Serious: Yes (Other)
  Sender: FDA-Public Use
  Company Number: JP-SA-2019SA056897

PATIENT
  Age: 37 Year
  Sex: Male

DRUGS (9)
  1. DESLORATADINE. [Suspect]
     Active Substance: DESLORATADINE
     Indication: PRURITUS
     Dosage: UNKNOWN DOSE
     Route: 065
     Dates: start: 20181228, end: 20190106
  2. XYZAL [Suspect]
     Active Substance: LEVOCETIRIZINE DIHYDROCHLORIDE
     Dosage: UNK
     Route: 048
     Dates: start: 20181228, end: 20190106
  3. XYZAL [Suspect]
     Active Substance: LEVOCETIRIZINE DIHYDROCHLORIDE
     Indication: PRURITUS
     Dosage: UNKNOWN DOSE
     Route: 048
     Dates: start: 20181217, end: 20181227
  4. PREDONINE [Concomitant]
     Active Substance: PREDNISOLONE
     Dosage: UNK
  5. TEPRENONE [Concomitant]
     Active Substance: TEPRENONE
  6. NEXIUM [Concomitant]
     Active Substance: ESOMEPRAZOLE MAGNESIUM
     Dosage: UNK
  7. OLOPATADINE HYDROCHLORIDE. [Suspect]
     Active Substance: OLOPATADINE HYDROCHLORIDE
     Indication: PRURITUS
     Dosage: UNKNOWN DOSE
     Route: 048
     Dates: start: 20190107, end: 20190121
  8. FLOMOX [CEFCAPENE PIVOXIL HYDROCHLORIDE] [Concomitant]
     Active Substance: CEFCAPENE PIVOXIL HYDROCHLORIDE
  9. CLARITH [Concomitant]
     Active Substance: CLARITHROMYCIN

REACTIONS (6)
  - Drug-induced liver injury [Recovering/Resolving]
  - Lymphadenopathy [Recovering/Resolving]
  - Jaundice [Recovering/Resolving]
  - Therapeutic product effect incomplete [Unknown]
  - Hyperbilirubinaemia [Recovering/Resolving]
  - Splenomegaly [Recovering/Resolving]

NARRATIVE: CASE EVENT DATE: 20190120
